FAERS Safety Report 14553256 (Version 3)
Quarter: 2018Q3

REPORT INFORMATION
  Report Type: Spontaneous
  Country: US (occurrence: US)
  Receive Date: 20180220
  Receipt Date: 20180713
  Transmission Date: 20181010
  Serious: Yes (Other)
  Sender: FDA-Public Use
  Company Number: US-DSJP-DSU-2017-149120

PATIENT

DRUGS (1)
  1. BENICAR [Suspect]
     Active Substance: OLMESARTAN MEDOXOMIL
     Indication: PRODUCT USED FOR UNKNOWN INDICATION
     Dosage: 20 MG, QD
     Dates: start: 20070101, end: 20161231

REACTIONS (15)
  - Incarcerated hernia [Unknown]
  - Crohn^s disease [Not Recovered/Not Resolved]
  - Irritable bowel syndrome [Not Recovered/Not Resolved]
  - Gastrooesophageal reflux disease [Unknown]
  - Intestinal perforation [Unknown]
  - Sprue-like enteropathy [Unknown]
  - Oesophageal candidiasis [Unknown]
  - Gastrointestinal haemorrhage [Recovered/Resolved]
  - Pancreatitis acute [Unknown]
  - Peptic ulcer [Unknown]
  - Diverticulitis [Unknown]
  - Intestinal obstruction [Unknown]
  - Ileus paralytic [Unknown]
  - Cholecystitis [Recovered/Resolved]
  - Diverticulum [Unknown]

NARRATIVE: CASE EVENT DATE: 20070320
